FAERS Safety Report 4406571-3 (Version None)
Quarter: 2004Q3

REPORT INFORMATION
  Report Type: 
  Country: None (occurrence: None)
  Receive Date: 20040723
  Receipt Date: 20040722
  Transmission Date: 20050211
  Serious: Yes (Other)
  Sender: FDA-Public Use
  Company Number: US-GLAXOSMITHKLINE-A0519382A

PATIENT
  Age: 37 Year
  Sex: Female

DRUGS (3)
  1. LAMICTAL [Suspect]
     Indication: BIPOLAR DISORDER
     Dosage: 50MG TWICE PER DAY
     Route: 048
  2. WELLBUTRIN XL [Concomitant]
  3. SEROQUEL [Concomitant]

REACTIONS (2)
  - BREAST CANCER [None]
  - COGNITIVE DISORDER [None]
